FAERS Safety Report 21104918 (Version 1)
Quarter: 2022Q3

REPORT INFORMATION
  Report Type: Spontaneous
  Country: US (occurrence: None)
  Receive Date: 20220719
  Receipt Date: 20220719
  Transmission Date: 20221027
  Serious: Yes (Other)
  Sender: FDA-Public Use
  Company Number: None

PATIENT
  Sex: Female
  Weight: 85.5 kg

DRUGS (23)
  1. RINVOQ [Suspect]
     Active Substance: UPADACITINIB
     Indication: Rheumatoid arthritis
     Dates: start: 20211117, end: 20220305
  2. DEVICE [Concomitant]
     Active Substance: DEVICE
  3. Neurostimulator implant [Concomitant]
  4. PLAQUENIL [Concomitant]
     Active Substance: HYDROXYCHLOROQUINE SULFATE
  5. PREDNISONE [Concomitant]
     Active Substance: PREDNISONE
  6. LIPITOR [Concomitant]
     Active Substance: ATORVASTATIN CALCIUM
  7. FENOFIBRATE [Concomitant]
     Active Substance: FENOFIBRATE
  8. LASIX [Concomitant]
     Active Substance: FUROSEMIDE
  9. ALDACTONE [Concomitant]
     Active Substance: SPIRONOLACTONE
  10. MORPHINE SULFATE [Concomitant]
     Active Substance: MORPHINE SULFATE
  11. PERCOCET [Concomitant]
     Active Substance: ACETAMINOPHEN\OXYCODONE HYDROCHLORIDE
  12. NEURONTIN [Concomitant]
     Active Substance: GABAPENTIN
  13. TRINTELLIX [Concomitant]
     Active Substance: VORTIOXETINE HYDROBROMIDE
  14. LAMICTAL [Concomitant]
     Active Substance: LAMOTRIGINE
  15. TRAZODONE [Concomitant]
     Active Substance: TRAZODONE HYDROCHLORIDE
  16. CANNABIS SATIVA SUBSP. INDICA TOP [Concomitant]
     Active Substance: CANNABIS SATIVA SUBSP. INDICA TOP
  17. PEPCID [Concomitant]
     Active Substance: FAMOTIDINE
  18. VITAMINS [Concomitant]
     Active Substance: VITAMINS
  19. HERBALS\TURMERIC [Concomitant]
     Active Substance: HERBALS\TURMERIC
  20. CINNAMON [Concomitant]
     Active Substance: CINNAMON
  21. VITAMIN D [Concomitant]
     Active Substance: VITAMIN D NOS
  22. VITAMIN B COMPLEX [Concomitant]
     Active Substance: CYANOCOBALAMIN\DEXPANTHENOL\NIACINAMIDE\PYRIDOXINE HYDROCHLORIDE\RIBOFLAVIN 5^-PHOSPHATE SODIUM\THIA
  23. MELATONIN [Concomitant]
     Active Substance: MELATONIN

REACTIONS (5)
  - Vision blurred [None]
  - Diplopia [None]
  - Contusion [None]
  - Haemorrhage [None]
  - Implant site bruising [None]
